FAERS Safety Report 18382732 (Version 1)
Quarter: 2020Q4

REPORT INFORMATION
  Report Type: Spontaneous
  Country: IT (occurrence: IT)
  Receive Date: 20201014
  Receipt Date: 20201014
  Transmission Date: 20210114
  Serious: Yes (Other)
  Sender: FDA-Public Use
  Company Number: IT-PFIZER INC-2020391558

PATIENT
  Age: 55 Year
  Sex: Female

DRUGS (3)
  1. ETOPOSIDE. [Suspect]
     Active Substance: ETOPOSIDE
     Indication: HEPATOCELLULAR CARCINOMA
     Dosage: 120 MG/M2, CYCLIC ( IN 500 ML OF SALINE, ON DAYS 1, 3 AND 5, WITH CYCLES REPEATED EVERY FOUR WEEKS)
     Route: 042
     Dates: start: 198310
  2. DOXORUBICIN HCL [Suspect]
     Active Substance: DOXORUBICIN HYDROCHLORIDE
     Dosage: 30 MG/M2, CYCLIC
     Route: 042
     Dates: start: 1984
  3. DOXORUBICIN HCL [Suspect]
     Active Substance: DOXORUBICIN HYDROCHLORIDE
     Indication: HEPATOCELLULAR CARCINOMA
     Dosage: 40 MG/M2, CYCLIC (40 MG/M2 I.V. ON DAY 1, WITH CYCLES REPEATED EVERY FOUR WEEKS)
     Route: 042
     Dates: start: 198310

REACTIONS (7)
  - Cardiac failure [Recovering/Resolving]
  - Myelosuppression [Unknown]
  - Nausea [Unknown]
  - Cardiotoxicity [Recovering/Resolving]
  - Hepatotoxicity [Unknown]
  - Alopecia [Unknown]
  - Gastrointestinal toxicity [Recovering/Resolving]
